FAERS Safety Report 21629348 (Version 2)
Quarter: 2022Q4

REPORT INFORMATION
  Report Type: Spontaneous
  Country: US (occurrence: US)
  Receive Date: 20221122
  Receipt Date: 20221205
  Transmission Date: 20230113
  Serious: No
  Sender: FDA-Public Use
  Company Number: US-BIOMARINAP-US-2022-146884

PATIENT

DRUGS (1)
  1. VIMIZIM [Suspect]
     Active Substance: ELOSULFASE ALFA
     Indication: Mucopolysaccharidosis IV
     Dosage: 65 MILLIGRAM, QW
     Route: 042
     Dates: start: 202209

REACTIONS (5)
  - Upper respiratory tract infection [Not Recovered/Not Resolved]
  - Oxygen saturation decreased [Unknown]
  - Breath sounds abnormal [Unknown]
  - Cough [Unknown]
  - Wheezing [Unknown]
